FAERS Safety Report 6365933-8 (Version None)
Quarter: 2009Q3

REPORT INFORMATION
  Report Type: 
  Country: None (occurrence: None)
  Receive Date: 20090919
  Receipt Date: 20090828
  Transmission Date: 20100115
  Serious: No
  Sender: FDA-Public Use
  Company Number: US-ABBOTT-09P-163-0594143-00

PATIENT
  Sex: Female
  Weight: 89.438 kg

DRUGS (4)
  1. HUMIRA [Suspect]
     Indication: RHEUMATOID ARTHRITIS
     Route: 058
     Dates: start: 20090401
  2. METHOTREXATE [Concomitant]
     Indication: DRUG USE FOR UNKNOWN INDICATION
  3. SYNTHROID [Concomitant]
     Indication: THYROIDECTOMY
     Dates: start: 19770101
  4. SYNTHROID [Concomitant]
     Indication: THYROID CANCER

REACTIONS (1)
  - DRUG DOSE OMISSION [None]
